FAERS Safety Report 4894784-6 (Version None)
Quarter: 2006Q1

REPORT INFORMATION
  Report Type: 
  Country: None (occurrence: None)
  Receive Date: 20060130
  Receipt Date: 20060119
  Transmission Date: 20060701
  Serious: Yes (Hospitalization)
  Sender: FDA-Public Use
  Company Number: AU-NOVOPROD-250137

PATIENT
  Age: 73 Year
  Sex: Female
  Weight: 70 kg

DRUGS (6)
  1. MIXTARD HUMAN 70/30 [Suspect]
     Indication: INSULIN-REQUIRING TYPE II DIABETES MELLITUS
     Dates: start: 20040210, end: 20050101
  2. LASIX [Concomitant]
     Dosage: 80 MG, QD
  3. CARVEDILOL [Concomitant]
     Dosage: 50 MG, QD
  4. SIMVASTATIN [Concomitant]
     Dosage: 40 MG, QD
  5. TRITACE [Concomitant]
     Dosage: 10 MG, QD
  6. ACETYLSALICYLIC ACID [Concomitant]

REACTIONS (2)
  - CORONARY ARTERY SURGERY [None]
  - HYPERTENSION [None]
